FAERS Safety Report 25157387 (Version 1)
Quarter: 2025Q2

REPORT INFORMATION
  Report Type: Report from Study
  Country: NL (occurrence: NL)
  Receive Date: 20250403
  Receipt Date: 20250403
  Transmission Date: 20250716
  Serious: Yes (Death)
  Sender: BAYER
  Company Number: NL-BAYER-2025A045416

PATIENT
  Age: 73 Year

DRUGS (1)
  1. ADEMPAS [Suspect]
     Active Substance: RIOCIGUAT
     Indication: Pulmonary arterial hypertension
     Dosage: 2.5 MG, TID
     Dates: start: 20200105, end: 20250323

REACTIONS (1)
  - Death [Fatal]

NARRATIVE: CASE EVENT DATE: 20250323
